FAERS Safety Report 23535556 (Version 1)
Quarter: 2024Q1

REPORT INFORMATION
  Report Type: Spontaneous
  Country: CN (occurrence: None)
  Receive Date: 20240218
  Receipt Date: 20240218
  Transmission Date: 20240409
  Serious: Yes (Hospitalization, Other)
  Sender: FDA-Public Use
  Company Number: 2024A037328

PATIENT
  Age: 61 Year
  Sex: Female
  Weight: 60 kg

DRUGS (1)
  1. TAGRISSO [Suspect]
     Active Substance: OSIMERTINIB
     Indication: Adjuvant therapy
     Route: 048
     Dates: start: 20211006, end: 20240206

REACTIONS (3)
  - Rash [Unknown]
  - Rash pruritic [Unknown]
  - Soft tissue infection [Unknown]

NARRATIVE: CASE EVENT DATE: 20240130
